FAERS Safety Report 13067811 (Version 1)
Quarter: 2016Q4

REPORT INFORMATION
  Report Type: Spontaneous
  Country: US (occurrence: US)
  Receive Date: 20161227
  Receipt Date: 20161227
  Transmission Date: 20170207
  Serious: Yes (Hospitalization)
  Sender: FDA-Public Use
  Company Number: None

PATIENT
  Age: 20 Year
  Sex: Male
  Weight: 107.6 kg

DRUGS (6)
  1. CYTARABINE. [Suspect]
     Active Substance: CYTARABINE
     Dates: end: 20161202
  2. PREDNISONE. [Suspect]
     Active Substance: PREDNISONE
     Dates: end: 20161219
  3. DAUNORUBICIN [Suspect]
     Active Substance: DAUNORUBICIN
     Dates: end: 20161216
  4. METHOTREXATE. [Suspect]
     Active Substance: METHOTREXATE
     Dates: end: 20161216
  5. ONCASPAR [Suspect]
     Active Substance: PEGASPARGASE
     Dates: end: 20161209
  6. VINCRISTINE SULFATE. [Suspect]
     Active Substance: VINCRISTINE SULFATE
     Dates: end: 20161216

REACTIONS (1)
  - Lipase increased [None]

NARRATIVE: CASE EVENT DATE: 20161216
